FAERS Safety Report 16393361 (Version 1)
Quarter: 2019Q2

REPORT INFORMATION
  Report Type: Spontaneous
  Country: DE (occurrence: DE)
  Receive Date: 20190605
  Receipt Date: 20190605
  Transmission Date: 20190711
  Serious: Yes (Hospitalization)
  Sender: FDA-Public Use
  Company Number: DE-PFIZER INC-2019230522

PATIENT
  Sex: Female

DRUGS (1)
  1. CORDAREX [Suspect]
     Active Substance: AMIODARONE
     Dosage: UNK

REACTIONS (2)
  - Toxicity to various agents [Unknown]
  - Atrial flutter [Unknown]
